FAERS Safety Report 5356931-1 (Version None)
Quarter: 2007Q2

REPORT INFORMATION
  Report Type: 
  Country: None (occurrence: None)
  Receive Date: 20070614
  Receipt Date: 20070604
  Transmission Date: 20071010
  Serious: Yes (Hospitalization)
  Sender: FDA-Public Use
  Company Number: US-KINGPHARMUSA00001-K200700624

PATIENT

DRUGS (7)
  1. ALTACE [Suspect]
     Indication: ESSENTIAL HYPERTENSION
     Dosage: 2.5 MG, QD
     Route: 048
  2. PRIMPERAN /00041901/ [Suspect]
     Indication: HICCUPS
     Dosage: 10 MG, QD
     Route: 048
     Dates: start: 20070326, end: 20070327
  3. TEMESTA  /00273201/ [Suspect]
     Dosage: 1 MG, QD
     Route: 048
     Dates: end: 20070326
  4. MEDIATENSYL /00631801/ [Suspect]
     Indication: ESSENTIAL HYPERTENSION
     Dosage: 60 MG, QD
     Route: 048
  5. BISOPROLOL FUMARATE [Suspect]
     Indication: ESSENTIAL HYPERTENSION
     Dosage: 10 MG, QD
     Route: 048
  6. PLAVIX [Suspect]
     Indication: ISCHAEMIC CARDIOMYOPATHY
     Dosage: 75 MG, QD
     Route: 048
     Dates: start: 20070324
  7. KARDEGIC /00002703/ [Concomitant]
     Dosage: UNK, UNK
     Dates: end: 20070301

REACTIONS (9)
  - APHASIA [None]
  - CEREBRAL ATROPHY [None]
  - CONFUSIONAL STATE [None]
  - DISORIENTATION [None]
  - HYPONATRAEMIA [None]
  - LOSS OF PROPRIOCEPTION [None]
  - MINI MENTAL STATUS EXAMINATION ABNORMAL [None]
  - SPEECH DISORDER [None]
  - TRANSIENT ISCHAEMIC ATTACK [None]
